FAERS Safety Report 19743844 (Version 2)
Quarter: 2021Q4

REPORT INFORMATION
  Report Type: Spontaneous
  Country: US (occurrence: US)
  Receive Date: 20210824
  Receipt Date: 20211008
  Transmission Date: 20220304
  Serious: No
  Sender: FDA-Public Use
  Company Number: US-JNJFOC-20210826621

PATIENT
  Age: 38 Year
  Sex: Female
  Weight: 70.82 kg

DRUGS (15)
  1. SPRAVATO [Suspect]
     Active Substance: ESKETAMINE
     Indication: Depression
     Dosage: X 1 DOSE
     Dates: start: 20210628
  2. SPRAVATO [Suspect]
     Active Substance: ESKETAMINE
     Dosage: X 9 DOSES; LAST DOSE PRIOR TO EVENT 17-AUG-2021
     Dates: start: 20210702
  3. SPRAVATO [Suspect]
     Active Substance: ESKETAMINE
     Dates: start: 20210707
  4. SPRAVATO [Suspect]
     Active Substance: ESKETAMINE
     Dates: start: 20210712
  5. SPRAVATO [Suspect]
     Active Substance: ESKETAMINE
     Dates: start: 20210716
  6. SPRAVATO [Suspect]
     Active Substance: ESKETAMINE
     Dates: start: 20210719
  7. SPRAVATO [Suspect]
     Active Substance: ESKETAMINE
     Dates: start: 20210722
  8. SPRAVATO [Suspect]
     Active Substance: ESKETAMINE
     Dates: start: 20210727
  9. SPRAVATO [Suspect]
     Active Substance: ESKETAMINE
     Dates: start: 20210811
  10. AFRIN [Concomitant]
     Active Substance: OXYMETAZOLINE
     Route: 045
  11. PROPRANOLOL HYDROCHLORIDE [Concomitant]
     Active Substance: PROPRANOLOL HYDROCHLORIDE
  12. CLONAZEPAM [Concomitant]
     Active Substance: CLONAZEPAM
  13. DULOXETINE [Concomitant]
     Active Substance: DULOXETINE
  14. MIRTAZAPINE [Concomitant]
     Active Substance: MIRTAZAPINE
  15. VYVANSE [Concomitant]
     Active Substance: LISDEXAMFETAMINE DIMESYLATE

REACTIONS (9)
  - Illusion [Recovered/Resolved]
  - Anxiety [Recovered/Resolved]
  - Motion sickness [Recovered/Resolved]
  - Dizziness [Recovered/Resolved]
  - Vomiting [Recovered/Resolved]
  - Suspected COVID-19 [Unknown]
  - Product dose omission issue [Unknown]
  - Discomfort [Recovered/Resolved]
  - Product complaint [Unknown]

NARRATIVE: CASE EVENT DATE: 20210801
